FAERS Safety Report 10300800 (Version 1)
Quarter: 2014Q3

REPORT INFORMATION
  Report Type: Spontaneous
  Country: US (occurrence: US)
  Receive Date: 20140714
  Receipt Date: 20140714
  Transmission Date: 20150326
  Serious: No
  Sender: FDA-Public Use
  Company Number: US-BIOGENIDEC-2014BI062542

PATIENT
  Sex: Female
  Weight: 73 kg

DRUGS (9)
  1. TYLENOL [Concomitant]
     Active Substance: ACETAMINOPHEN
  2. XANAX [Concomitant]
     Active Substance: ALPRAZOLAM
  3. ESCITALOPRAM [Concomitant]
     Active Substance: ESCITALOPRAM OXALATE
  4. LOW DOSE ASA [Concomitant]
  5. CENTRUM [Concomitant]
     Active Substance: VITAMINS
  6. ONDANSETRON [Concomitant]
     Active Substance: ONDANSETRON
  7. TECFIDERA [Suspect]
     Active Substance: DIMETHYL FUMARATE
     Indication: MULTIPLE SCLEROSIS
     Route: 048
  8. BACLOFEN. [Concomitant]
     Active Substance: BACLOFEN
  9. IBUPROFEN. [Concomitant]
     Active Substance: IBUPROFEN

REACTIONS (2)
  - Anxiety [Unknown]
  - Anaemia [Unknown]
